FAERS Safety Report 20029050 (Version 1)
Quarter: 2021Q4

REPORT INFORMATION
  Report Type: Spontaneous
  Country: US (occurrence: US)
  Receive Date: 20211103
  Receipt Date: 20211103
  Transmission Date: 20220304
  Serious: No
  Sender: FDA-Public Use
  Company Number: US-HORIZON THERAPEUTICS-HZN-2021-006962

PATIENT
  Sex: Female
  Weight: 62 kg

DRUGS (10)
  1. TEPEZZA [Suspect]
     Active Substance: TEPROTUMUMAB-TRBW
     Indication: Product used for unknown indication
     Dosage: 640 MG, FIRST INFUSION
     Route: 042
     Dates: start: 20201210
  2. TEPEZZA [Suspect]
     Active Substance: TEPROTUMUMAB-TRBW
     Dosage: 1280 MG, 2ND INFUSION
     Route: 042
     Dates: start: 20201231
  3. TEPEZZA [Suspect]
     Active Substance: TEPROTUMUMAB-TRBW
     Dosage: 1280 MG, 3RD INFUSION
     Route: 042
     Dates: start: 20210121
  4. TEPEZZA [Suspect]
     Active Substance: TEPROTUMUMAB-TRBW
     Dosage: 1280 MG, 4TH INFUSION
     Route: 042
     Dates: start: 20210211
  5. TEPEZZA [Suspect]
     Active Substance: TEPROTUMUMAB-TRBW
     Dosage: 4TH INFUSION, SECOND LOT NUMBER
     Route: 042
  6. TEPEZZA [Suspect]
     Active Substance: TEPROTUMUMAB-TRBW
     Dosage: 1280 MG, 5TH INFUSION
     Route: 042
     Dates: start: 20210304
  7. TEPEZZA [Suspect]
     Active Substance: TEPROTUMUMAB-TRBW
     Dosage: 1280 MG, 6TH INFUSION
     Route: 042
     Dates: start: 20210325
  8. TEPEZZA [Suspect]
     Active Substance: TEPROTUMUMAB-TRBW
     Dosage: 1280 MG, 7TH INFUSION
     Route: 042
     Dates: start: 20210419
  9. TEPEZZA [Suspect]
     Active Substance: TEPROTUMUMAB-TRBW
     Dosage: 7TH INFUSION, SECOND LOT NUMBER
     Route: 042
  10. TEPEZZA [Suspect]
     Active Substance: TEPROTUMUMAB-TRBW
     Dosage: 1280 MG, 8TH INFUSION
     Route: 042
     Dates: start: 20210506

REACTIONS (3)
  - Onychoclasis [Unknown]
  - Onycholysis [Unknown]
  - Hypoacusis [Not Recovered/Not Resolved]
